FAERS Safety Report 25773848 (Version 2)
Quarter: 2025Q4

REPORT INFORMATION
  Report Type: Spontaneous
  Country: US (occurrence: US)
  Receive Date: 20250908
  Receipt Date: 20251110
  Transmission Date: 20260118
  Serious: No
  Sender: PFIZER
  Company Number: US-PFIZER INC-2021000543

PATIENT
  Age: 75 Year
  Sex: Female

DRUGS (1)
  1. PREMARIN [Suspect]
     Active Substance: ESTROGENS, CONJUGATED
     Dosage: UNK, 2-3X/WEEK
     Route: 067

REACTIONS (4)
  - Drug hypersensitivity [Unknown]
  - Vulvovaginal burning sensation [Unknown]
  - Off label use [Unknown]
  - Product dose omission issue [Unknown]
